FAERS Safety Report 17533568 (Version 1)
Quarter: 2020Q1

REPORT INFORMATION
  Report Type: Spontaneous
  Country: DE (occurrence: DE)
  Receive Date: 20200312
  Receipt Date: 20200312
  Transmission Date: 20200409
  Serious: Yes (Disabling, Congenital Anomaly, Other)
  Sender: FDA-Public Use
  Company Number: DE-PFIZER INC-2020103933

PATIENT
  Sex: Female

DRUGS (1)
  1. CYTOTEC [Suspect]
     Active Substance: MISOPROSTOL
     Dosage: UNK
     Route: 064
     Dates: start: 20061123

REACTIONS (8)
  - Foetal heart rate decreased [Recovered/Resolved with Sequelae]
  - Dysphagia [Recovered/Resolved with Sequelae]
  - Blindness congenital [Recovered/Resolved with Sequelae]
  - Foetal distress syndrome [Recovered/Resolved with Sequelae]
  - Congenital brain damage [Recovered/Resolved with Sequelae]
  - Areflexia [Recovered/Resolved with Sequelae]
  - Foetal exposure during pregnancy [Unknown]
  - Epilepsy congenital [Recovered/Resolved with Sequelae]

NARRATIVE: CASE EVENT DATE: 2006
